FAERS Safety Report 24093239 (Version 1)
Quarter: 2024Q3

REPORT INFORMATION
  Report Type: Spontaneous
  Country: FR (occurrence: FR)
  Receive Date: 20240715
  Receipt Date: 20240715
  Transmission Date: 20241017
  Serious: Yes (Hospitalization)
  Sender: MYLAN
  Company Number: None

PATIENT
  Age: 10 Year
  Sex: Male
  Weight: 35 kg

DRUGS (6)
  1. METHOTREXATE [Suspect]
     Active Substance: METHOTREXATE
     Indication: T-cell type acute leukaemia
     Dosage: 12 MILLIGRAM, 1 TOTAL
     Route: 037
     Dates: start: 20240430, end: 20240430
  2. METHOTREXATE [Suspect]
     Active Substance: METHOTREXATE
     Dosage: 12 MILLIGRAM, 1 TOTAL
     Route: 037
     Dates: start: 20240521, end: 20240521
  3. CERUBIDINE [Suspect]
     Active Substance: DAUNORUBICIN HYDROCHLORIDE
     Indication: T-cell type acute leukaemia
     Dosage: 25 MILLIGRAM/SQ. METER, CYCLE (D1-D8-D15 )
     Route: 042
     Dates: start: 20240507, end: 20240521
  4. VINCRISTINE [Suspect]
     Active Substance: VINCRISTINE
     Indication: T-cell type acute leukaemia
     Dosage: 1.5 MILLIGRAM/SQ. METER, CYCLE (D1-D8-D15 )
     Route: 042
     Dates: start: 20240507, end: 20240521
  5. DEXAMETHASONE [Suspect]
     Active Substance: DEXAMETHASONE
     Indication: T-cell type acute leukaemia
     Dosage: 6.5 MILLIGRAM, QD (3.5MG-0-3MG)
     Route: 048
     Dates: start: 20240507, end: 20240609
  6. ONCASPAR [Suspect]
     Active Substance: PEGASPARGASE
     Indication: T-cell type acute leukaemia
     Dosage: 1500 INTERNATIONAL UNIT, CYCLE (D4-D18 1500 UI/M?, 750UI/ML )
     Route: 042
     Dates: start: 20240510, end: 20240524

REACTIONS (1)
  - Posterior reversible encephalopathy syndrome [Recovering/Resolving]

NARRATIVE: CASE EVENT DATE: 20240607
